FAERS Safety Report 8580023-1 (Version None)
Quarter: 2012Q3

REPORT INFORMATION
  Report Type: 
  Country: None (occurrence: None)
  Receive Date: 20120731
  Receipt Date: 20120731
  Transmission Date: 20120928
  Serious: Yes (Other)
  Sender: FDA-Public Use
  Company Number: None

PATIENT
  Sex: Female

DRUGS (13)
  1. ATACAND HCT [Concomitant]
  2. FLUTICASONE PROPIONATE [Concomitant]
  3. ASTELIN [Concomitant]
  4. ASPIRIN [Concomitant]
  5. CIPROFLOXACIN [Suspect]
     Indication: BRONCHITIS
     Dosage: 500 MG TWICE A DAY PO
     Route: 048
     Dates: start: 20120726, end: 20120727
  6. DILTIAZEM HCL [Concomitant]
  7. PAXCEL [Concomitant]
  8. VYTORIN [Concomitant]
  9. SYNTHROID [Concomitant]
  10. CALCIUM [Concomitant]
  11. GLUCOSEMINE [Concomitant]
  12. SINGULAIR [Concomitant]
  13. LATANOPROST [Concomitant]

REACTIONS (3)
  - SCAB [None]
  - RASH MACULO-PAPULAR [None]
  - PAIN [None]
